FAERS Safety Report 6494837-5 (Version None)
Quarter: 2009Q4

REPORT INFORMATION
  Report Type: 
  Country: None (occurrence: None)
  Receive Date: 20091214
  Receipt Date: 20090331
  Transmission Date: 20100525
  Serious: No
  Sender: FDA-Public Use
  Company Number: US-BRISTOL-MYERS SQUIBB COMPANY-14568422

PATIENT
  Age: 70 Year
  Sex: Female
  Weight: 73 kg

DRUGS (5)
  1. ABILIFY [Suspect]
     Indication: DEPRESSION
     Dosage: STARTES IN SEPTEMBER
  2. ABILIFY [Suspect]
     Indication: ANXIETY
     Dosage: STARTES IN SEPTEMBER
  3. CELEXA [Concomitant]
  4. PRILOSEC [Concomitant]
  5. LISINOPRIL [Concomitant]

REACTIONS (3)
  - MYALGIA [None]
  - NIGHTMARE [None]
  - WEIGHT INCREASED [None]
